FAERS Safety Report 12503558 (Version 1)
Quarter: 2016Q2

REPORT INFORMATION
  Report Type: Spontaneous
  Country: US (occurrence: None)
  Receive Date: 20160627
  Receipt Date: 20160627
  Transmission Date: 20160815
  Serious: No
  Sender: FDA-Public Use
  Company Number: None

PATIENT
  Age: 23 Year
  Sex: Female
  Weight: 95 kg

DRUGS (4)
  1. CARIPRAZINE, 1.5MG [Suspect]
     Active Substance: CARIPRAZINE
     Indication: SCHIZOAFFECTIVE DISORDER
     Route: 048
     Dates: start: 20160301, end: 20160627
  2. CARIPRAZINE, 1.5MG [Suspect]
     Active Substance: CARIPRAZINE
     Indication: OBSESSIVE-COMPULSIVE DISORDER
     Route: 048
     Dates: start: 20160301, end: 20160627
  3. CARIPRAZINE, 1.5MG [Suspect]
     Active Substance: CARIPRAZINE
     Indication: ANXIETY
     Route: 048
     Dates: start: 20160301, end: 20160627
  4. CARIPRAZINE, 1.5MG [Suspect]
     Active Substance: CARIPRAZINE
     Indication: MAJOR DEPRESSION
     Route: 048
     Dates: start: 20160301, end: 20160627

REACTIONS (1)
  - Chromatopsia [None]

NARRATIVE: CASE EVENT DATE: 20160622
